FAERS Safety Report 5976214-6 (Version None)
Quarter: 2008Q4

REPORT INFORMATION
  Report Type: 
  Country: None (occurrence: None)
  Receive Date: 20081126
  Receipt Date: 20080618
  Transmission Date: 20090506
  Serious: Yes (Hospitalization)
  Sender: FDA-Public Use
  Company Number: 2008BH006004

PATIENT
  Age: 58 Year
  Sex: Male

DRUGS (14)
  1. DIANEAL [Suspect]
     Indication: PERITONEAL DIALYSIS
     Dosage: 13 L;EVERY DAY;IP
     Route: 033
     Dates: start: 20080601
  2. DIANEAL [Suspect]
     Indication: PERITONEAL DIALYSIS
     Dosage: 2 L;EVERY DAY;IP
     Route: 033
     Dates: start: 20080101
  3. CLONIDINE [Concomitant]
  4. COLACE [Concomitant]
  5. FOSRENOL [Concomitant]
  6. MULTI-VITAMIN [Concomitant]
  7. SENSIPAR [Concomitant]
  8. NORVASC [Concomitant]
  9. COREG [Concomitant]
  10. PRANDIN [Concomitant]
  11. ENALAPRIL MALEATE [Concomitant]
  12. LASIX [Concomitant]
  13. SULAR [Concomitant]
  14. EPOGEN [Concomitant]

REACTIONS (1)
  - HYPERTENSION [None]
